FAERS Safety Report 6044089-5 (Version None)
Quarter: 2009Q1

REPORT INFORMATION
  Report Type: 
  Country: None (occurrence: None)
  Receive Date: 20090120
  Receipt Date: 20090116
  Transmission Date: 20090719
  Serious: Yes (Hospitalization)
  Sender: FDA-Public Use
  Company Number: B0550643B

PATIENT
  Age: 70 Year
  Sex: Female
  Weight: 72.8 kg

DRUGS (5)
  1. ROSIGLITAZONE [Suspect]
     Dosage: 4MG PER DAY
     Route: 048
     Dates: start: 20021126, end: 20060508
  2. AVANDIA [Suspect]
     Dates: start: 20070102
  3. CORODIL [Concomitant]
     Indication: HYPERTENSION
     Dosage: 20MG PER DAY
     Route: 048
     Dates: start: 20000427
  4. PRAVACHOL [Concomitant]
     Dosage: 20MG PER DAY
     Route: 048
     Dates: start: 20001207
  5. AMARYL [Concomitant]
     Route: 048

REACTIONS (2)
  - ARTERIOSCLEROSIS [None]
  - DYSPNOEA [None]
